FAERS Safety Report 9800456 (Version 2)
Quarter: 2015Q4

REPORT INFORMATION
  Report Type: Report from Study
  Country: US (occurrence: US)
  Receive Date: 20140107
  Receipt Date: 20151026
  Transmission Date: 20160305
  Serious: Yes (Hospitalization, Other)
  Sender: FDA-Public Use
  Company Number: US-ROCHE-1328105

PATIENT
  Age: 45 Year
  Sex: Female

DRUGS (37)
  1. GLUCOTROL XL [Concomitant]
     Active Substance: GLIPIZIDE
     Dosage: 1 ORAL DAILY, EXTENDED RELEASE/24HRS
     Route: 048
  2. PREVACID [Concomitant]
     Active Substance: LANSOPRAZOLE
     Dosage: DELAYED RELEASE
     Route: 048
     Dates: start: 20110728
  3. ALBUTEROL SULFATE. [Concomitant]
     Active Substance: ALBUTEROL SULFATE
     Dosage: ACT AEROSOL. 1-2 PUFFS Q4-6 PRN.
     Route: 065
  4. OMNICEF (UNITED STATES) [Concomitant]
     Route: 065
  5. METFORMIN [Concomitant]
     Active Substance: METFORMIN HYDROCHLORIDE
     Route: 065
  6. EPINEPHRINE. [Concomitant]
     Active Substance: EPINEPHRINE
     Route: 065
  7. POTASSIUM CHLORIDE. [Concomitant]
     Active Substance: POTASSIUM CHLORIDE
     Dosage: 1 ORAL DAILY, EXTENDED RELEASE
     Route: 048
  8. EPIPEN [Concomitant]
     Active Substance: EPINEPHRINE
     Dosage: 0.3MG IN 0.3ML. UCT DICT GO TO ER
     Route: 030
  9. ALBUTEROL SULFATE. [Concomitant]
     Active Substance: ALBUTEROL SULFATE
     Dosage: 2.5MG IN 3ML . 1 INHALATION THREE TIME DAILY PRN
     Route: 065
     Dates: start: 20120419
  10. VANTIN (UNITED STATES) [Concomitant]
     Dosage: FOR 1 WEEK
     Route: 048
  11. ADVAIR DISKUS [Concomitant]
     Active Substance: FLUTICASONE PROPIONATE\SALMETEROL XINAFOATE
     Dosage: 500-50 MCG, 1 INHALATION 2 TIMES DAILY
     Route: 065
     Dates: start: 20110728
  12. CODEINE [Concomitant]
     Active Substance: CODEINE
  13. TYLENOL [Concomitant]
     Active Substance: ACETAMINOPHEN
     Dosage: EXTENDED RELEASE, EVERY FOUR HOURS
     Route: 048
  14. MUCINEX [Concomitant]
     Active Substance: GUAIFENESIN
     Dosage: EXTENDED RELEASE,
     Route: 048
  15. OMEPRAZOLE. [Concomitant]
     Active Substance: OMEPRAZOLE
     Route: 048
  16. LIDOCAINE HCL [Concomitant]
     Active Substance: LIDOCAINE HYDROCHLORIDE
     Dosage: APPLY DAILY PRN
     Route: 065
  17. ALLEGRA [Concomitant]
     Active Substance: FEXOFENADINE HYDROCHLORIDE
     Dosage: 1 ORAL TWO TIMES DAILY
     Route: 048
  18. ZOLOFT [Concomitant]
     Active Substance: SERTRALINE HYDROCHLORIDE
     Dosage: 1 PO Q DAY IN AM
     Route: 048
  19. SYMBICORT [Concomitant]
     Active Substance: BUDESONIDE\FORMOTEROL FUMARATE DIHYDRATE
     Dosage: 160-405 MCG, ACT AEROSOL, 1 PUFF BID
     Route: 065
     Dates: start: 20110728
  20. ASPIRIN. [Concomitant]
     Active Substance: ASPIRIN
     Route: 065
  21. DUONEB [Concomitant]
     Active Substance: ALBUTEROL SULFATE\IPRATROPIUM BROMIDE
     Dosage: 0.5-2.5 MG, (3MG/3ML)SOLUTION. 1 INHALATION EVERY 4HRS
     Route: 065
     Dates: start: 20120419
  22. XOLAIR [Suspect]
     Active Substance: OMALIZUMAB
     Indication: RHINITIS ALLERGIC
  23. FUROSEMIDE. [Concomitant]
     Active Substance: FUROSEMIDE
     Dosage: 1 ORAL DAILY
     Route: 048
  24. NYSTATIN. [Concomitant]
     Active Substance: NYSTATIN
     Dosage: ^SWISH AND SWALLOW^
     Route: 065
  25. SINGULAIR [Concomitant]
     Active Substance: MONTELUKAST SODIUM
     Dosage: 1 PO Q DAY HS
     Route: 048
     Dates: start: 20110728
  26. LORATADINE. [Concomitant]
     Active Substance: LORATADINE
     Route: 065
  27. LEVEMIR [Concomitant]
     Active Substance: INSULIN DETEMIR
     Dosage: 100UNIT/ML SOL 18UNITS SUBQ AT BEDTIME
     Route: 058
  28. XOLAIR [Suspect]
     Active Substance: OMALIZUMAB
     Indication: ASTHMA
     Route: 058
     Dates: start: 20111206, end: 201211
  29. LACTOBACILLUS [Concomitant]
     Active Substance: LACTOBACILLUS ACIDOPHILUS
     Route: 048
  30. FLONASE (UNITED STATES) [Concomitant]
     Dosage: 1-2 SQ EA NOPS QD^
     Route: 065
     Dates: start: 20110728
  31. FLEXERIL [Concomitant]
     Active Substance: CYCLOBENZAPRINE HYDROCHLORIDE
     Dosage: 1 ORAL THREE TIMES DAILY AS NEEDED
     Route: 048
  32. PROAIR HFA [Concomitant]
     Active Substance: ALBUTEROL SULFATE
     Dosage: 108MCG 1INHALATION EVERY 4 HRS PRN
     Route: 065
  33. GLUCOPHAGE XR [Concomitant]
     Active Substance: METFORMIN HYDROCHLORIDE
     Dosage: 1 ORAL TWO TIMES DAILY, EXTENDED RELEASE/24HRS
     Route: 048
  34. NASAL SALINE [Concomitant]
     Active Substance: SODIUM CHLORIDE
     Dosage: AS REQUIRED
     Route: 065
  35. TUSSIONEX PENNKINETIC [Concomitant]
     Active Substance: CHLORPHENIRAMINE\HYDROCODONE
  36. SERTRALINE [Concomitant]
     Active Substance: SERTRALINE HYDROCHLORIDE
     Route: 048
  37. AZITHROMYCIN [Concomitant]
     Active Substance: AZITHROMYCIN ANHYDROUS
     Dosage: TAKE 2 TABLETS BY MOUTH ON DAY1,THEN TAKE 1 TABLET
     Route: 048

REACTIONS (39)
  - Asthma [Unknown]
  - Cough [Unknown]
  - Angiopathy [Unknown]
  - Pulse absent [Unknown]
  - Loss of consciousness [Unknown]
  - Nasal congestion [Unknown]
  - Electrocardiogram repolarisation abnormality [Unknown]
  - Body temperature increased [Unknown]
  - Respiratory tract congestion [Unknown]
  - Injection site pain [Unknown]
  - Sleep apnoea syndrome [Unknown]
  - Decreased appetite [Unknown]
  - Poor quality sleep [Unknown]
  - Nasal mucosal discolouration [Unknown]
  - Alanine aminotransferase increased [Unknown]
  - Headache [Unknown]
  - Upper-airway cough syndrome [Unknown]
  - Breath sounds abnormal [Unknown]
  - Insomnia [Unknown]
  - Epistaxis [Unknown]
  - Malaise [Unknown]
  - Bronchitis [Unknown]
  - Syncope [Unknown]
  - Productive cough [Unknown]
  - Chills [Unknown]
  - Restrictive pulmonary disease [Unknown]
  - Haemoptysis [Unknown]
  - Dyspnoea exertional [Unknown]
  - Dyspnoea [Unknown]
  - Aspartate aminotransferase increased [Unknown]
  - Asthenia [Unknown]
  - Chest discomfort [Unknown]
  - Eyelid oedema [Unknown]
  - Oropharyngeal pain [Unknown]
  - Exercise tolerance decreased [Unknown]
  - Lung disorder [Unknown]
  - Middle insomnia [Unknown]
  - Wheezing [Unknown]
  - Chest pain [Unknown]

NARRATIVE: CASE EVENT DATE: 20120423
